FAERS Safety Report 19985223 (Version 1)
Quarter: 2021Q4

REPORT INFORMATION
  Report Type: Spontaneous
  Country: US (occurrence: US)
  Receive Date: 20211022
  Receipt Date: 20211022
  Transmission Date: 20220303
  Serious: Yes (Other)
  Sender: FDA-Public Use
  Company Number: None

PATIENT
  Age: 18 Year
  Sex: Female
  Weight: 55.8 kg

DRUGS (5)
  1. ZAFEMY [Suspect]
     Active Substance: ETHINYL ESTRADIOL\NORELGESTROMIN
     Indication: Contraception
     Dosage: ?          OTHER FREQUENCY:WEEKLY PATCH;
     Route: 062
     Dates: start: 20210727, end: 20210903
  2. ZAFEMY [Concomitant]
     Active Substance: ETHINYL ESTRADIOL\NORELGESTROMIN
     Dates: start: 20210727, end: 20210903
  3. XULANE [Concomitant]
     Active Substance: ETHINYL ESTRADIOL\NORELGESTROMIN
     Dates: start: 20210506, end: 20210727
  4. XULANE [Concomitant]
     Active Substance: ETHINYL ESTRADIOL\NORELGESTROMIN
     Dates: start: 20211013
  5. JUNEL FE 1/20 [Concomitant]
     Active Substance: ETHINYL ESTRADIOL\NORETHINDRONE ACETATE
     Dates: start: 20210903, end: 20211013

REACTIONS (4)
  - Product adhesion issue [None]
  - Product substitution issue [None]
  - Pregnancy [None]
  - Abortion induced [None]

NARRATIVE: CASE EVENT DATE: 20211013
